FAERS Safety Report 17183716 (Version 1)
Quarter: 2019Q4

REPORT INFORMATION
  Report Type: Spontaneous
  Country: FR (occurrence: FR)
  Receive Date: 20191220
  Receipt Date: 20191220
  Transmission Date: 20200122
  Serious: Yes (Hospitalization)
  Sender: FDA-Public Use
  Company Number: FR-PFIZER INC-2019540683

PATIENT
  Age: 17 Year
  Sex: Female
  Weight: 69.2 kg

DRUGS (24)
  1. BACTRIM [Concomitant]
     Active Substance: SULFAMETHOXAZOLE\TRIMETHOPRIM
     Dosage: UNK
  2. FASTURTEC [Concomitant]
     Active Substance: RASBURICASE
     Dosage: UNK
  3. PHLOROGLUCINOL ARROW [Concomitant]
     Active Substance: PHLOROGLUCINOL
     Dosage: UNK
  4. ONDANSETRON ACCORD [Concomitant]
     Active Substance: ONDANSETRON
     Dosage: UNK
  5. CYTARABINE EBEWE [Suspect]
     Active Substance: CYTARABINE
     Indication: ACUTE MYELOID LEUKAEMIA
     Dosage: UNK
     Route: 041
  6. CEFTAZIDIME MYLAN [Concomitant]
     Active Substance: CEFTAZIDIME
     Dosage: UNK
  7. PLITICAN [Concomitant]
     Active Substance: ALIZAPRIDE HYDROCHLORIDE
     Dosage: UNK
  8. POLARAMINE [Concomitant]
     Active Substance: DEXCHLORPHENIRAMINE MALEATE
     Dosage: UNK
  9. FUROSEMIDE RENAUDIN [Concomitant]
     Active Substance: FUROSEMIDE
     Dosage: UNK
  10. HYDROXYZINE RENAUDIN [Concomitant]
     Active Substance: HYDROXYZINE HYDROCHLORIDE
     Dosage: UNK
  11. LOVENOX [Concomitant]
     Active Substance: ENOXAPARIN SODIUM
     Dosage: UNK
  12. FUNGIZONE [Concomitant]
     Active Substance: AMPHOTERICIN B
     Dosage: UNK
  13. HYDROCORTISONE UPJOHN [Concomitant]
     Active Substance: HYDROCORTISONE
     Dosage: UNK
  14. MYLOTARG [Suspect]
     Active Substance: GEMTUZUMAB OZOGAMICIN
     Indication: ACUTE MYELOID LEUKAEMIA
     Dosage: UNK
     Route: 041
  15. TOPALGIC [Concomitant]
     Dosage: UNK
  16. VANCOMYCINE SANDOZ [Concomitant]
     Active Substance: VANCOMYCIN
     Dosage: UNK
  17. CYTARABINE EBEWE [Suspect]
     Active Substance: CYTARABINE
     Dosage: UNK
     Route: 037
  18. NOVANTRONE [Suspect]
     Active Substance: MITOXANTRONE HYDROCHLORIDE
     Indication: ACUTE MYELOID LEUKAEMIA
     Dosage: UNK
     Route: 041
  19. AMBISOME LYOPHILISIERTES [Suspect]
     Active Substance: AMPHOTERICIN B\CHOLESTEROL
     Indication: ANTIFUNGAL PROPHYLAXIS
     Dosage: 70 MG, UNK (MONDAYS, WEDNESDAYS AND FRIDAYS)
     Route: 041
     Dates: start: 20190917, end: 20190927
  20. AMIKACIN MYLAN [Concomitant]
     Active Substance: AMIKACIN
     Dosage: UNK
  21. CHOLURSO [Concomitant]
     Active Substance: URSODIOL
     Dosage: UNK
  22. PANTOPRAZOLE SODIUM. [Concomitant]
     Active Substance: PANTOPRAZOLE SODIUM
     Dosage: UNK
  23. PARACETAMOL B BRAUN [Concomitant]
     Active Substance: ACETAMINOPHEN
     Dosage: UNK
  24. NOXAFIL [Concomitant]
     Active Substance: POSACONAZOLE
     Dosage: UNK

REACTIONS (2)
  - Diabetes insipidus [Recovered/Resolved]
  - Hypophysitis [Recovered/Resolved]

NARRATIVE: CASE EVENT DATE: 20190923
